FAERS Safety Report 7133657 (Version 6)
Quarter: 2015Q4

REPORT INFORMATION
  Report Type: Spontaneous
  Country: US (occurrence: US)
  Receive Date: 20090929
  Receipt Date: 20151124
  Transmission Date: 20160305
  Serious: Yes (Hospitalization, Other)
  Sender: FDA-Public Use
  Company Number: US-BAYER-200933583NA

PATIENT
  Age: 32 Year
  Sex: Female
  Weight: 55 kg

DRUGS (13)
  1. INDERAL [Concomitant]
     Active Substance: PROPRANOLOL HYDROCHLORIDE
     Indication: MIGRAINE
     Dosage: UNK
     Dates: start: 20080601
  2. NEURONTIN [Concomitant]
     Active Substance: GABAPENTIN
  3. CLORAZEPATE [Concomitant]
     Active Substance: CLORAZEPATE DIPOTASSIUM
     Dosage: 7 MG, BID
     Route: 048
     Dates: start: 20071003
  4. PROMETHAZINE [Concomitant]
     Active Substance: PROMETHAZINE\PROMETHAZINE HYDROCHLORIDE
     Dosage: 12.5 MG, CONT
     Route: 048
  5. YAZ [Suspect]
     Active Substance: DROSPIRENONE\ETHINYL ESTRADIOL
     Route: 048
     Dates: start: 200703, end: 200805
  6. PROPANOLOL [Concomitant]
     Active Substance: PROPRANOLOL HYDROCHLORIDE
     Indication: HEADACHE
  7. IMITREX [Concomitant]
     Active Substance: SUMATRIPTAN\SUMATRIPTAN SUCCINATE
     Indication: MIGRAINE
     Dosage: UNK
     Dates: start: 20080601, end: 20080601
  8. ELAVIL [Concomitant]
     Active Substance: AMITRIPTYLINE HYDROCHLORIDE
     Indication: MIGRAINE
  9. AMOXICILLIN AND CLAVULANATE POTASSIUM [Concomitant]
     Active Substance: AMOXICILLIN\CLAVULANATE POTASSIUM
     Dosage: 500 MG, TID
     Route: 048
  10. CLORAZEPATE [Concomitant]
     Active Substance: CLORAZEPATE DIPOTASSIUM
     Dosage: 3.75 MG, BID
     Route: 048
  11. BELLADONNA AND PHENOBARBITONE [Concomitant]
     Dosage: UNK
     Route: 048
     Dates: start: 20080111
  12. SERTRALINE [Concomitant]
     Active Substance: SERTRALINE HYDROCHLORIDE
     Dosage: 50 MG, CONT
     Route: 048
  13. SYNTHROID [Concomitant]
     Active Substance: LEVOTHYROXINE SODIUM
     Indication: AUTOIMMUNE THYROIDITIS
     Dosage: 0.025 MG, CONT
     Route: 048

REACTIONS (15)
  - Balance disorder [Recovering/Resolving]
  - Cerebrovascular accident [Recovering/Resolving]
  - Feeling abnormal [Recovering/Resolving]
  - Nausea [Recovering/Resolving]
  - Migraine [Unknown]
  - Headache [Recovering/Resolving]
  - Dysarthria [Recovering/Resolving]
  - VIIth nerve paralysis [Recovering/Resolving]
  - Peripheral swelling [Recovering/Resolving]
  - Hypercoagulation [None]
  - Aphasia [Recovering/Resolving]
  - Anxiety [None]
  - Embolism arterial [None]
  - Vision blurred [Recovering/Resolving]
  - Anger [None]

NARRATIVE: CASE EVENT DATE: 20080531
